FAERS Safety Report 5079163-3 (Version None)
Quarter: 2006Q3

REPORT INFORMATION
  Report Type: 
  Country: None (occurrence: None)
  Receive Date: 20060814
  Receipt Date: 20060404
  Transmission Date: 20061208
  Serious: Yes (Hospitalization)
  Sender: FDA-Public Use
  Company Number: FR-GLAXOSMITHKLINE-B0419078A

PATIENT
  Age: 63 Year
  Sex: Male

DRUGS (2)
  1. MALARONE [Suspect]
     Indication: MALARIA PROPHYLAXIS
     Dosage: 1UNIT PER DAY
     Route: 048
     Dates: start: 20060205, end: 20060307
  2. LANZOR [Concomitant]
     Route: 065

REACTIONS (5)
  - CUTANEOUS VASCULITIS [None]
  - ERYTHEMA [None]
  - RASH MACULAR [None]
  - SKIN DISORDER [None]
  - URTICARIA [None]
